FAERS Safety Report 8544209-4 (Version None)
Quarter: 2012Q3

REPORT INFORMATION
  Report Type: 
  Country: None (occurrence: None)
  Receive Date: 20120727
  Receipt Date: 20120723
  Transmission Date: 20120928
  Serious: Yes (Other)
  Sender: FDA-Public Use
  Company Number: PHHY2012CA060485

PATIENT
  Sex: Female

DRUGS (6)
  1. GILENYA [Suspect]
     Indication: RELAPSING-REMITTING MULTIPLE SCLEROSIS
     Dosage: 0.5 MG, DAILY
     Route: 048
     Dates: start: 20120709
  2. TYLENOL [Concomitant]
     Dosage: UNK UKN, UNK
  3. FIORINAL [Concomitant]
     Dosage: UNK UKN, UNK
  4. VITAMIN B-12 [Concomitant]
     Dosage: UNK UKN, UNK
  5. VITAMIN D [Concomitant]
     Dosage: UNK UKN, UNK
  6. MOTRIN [Concomitant]
     Dosage: UNK UKN, UNK

REACTIONS (7)
  - BLOOD PRESSURE DECREASED [None]
  - SOMNOLENCE [None]
  - ABDOMINAL DISCOMFORT [None]
  - HEART RATE DECREASED [None]
  - FATIGUE [None]
  - NAUSEA [None]
  - BACK PAIN [None]
